FAERS Safety Report 6146175-8 (Version None)
Quarter: 2009Q2

REPORT INFORMATION
  Report Type: 
  Country: None (occurrence: None)
  Receive Date: 20090407
  Receipt Date: 20080929
  Transmission Date: 20091009
  Serious: Yes (Hospitalization)
  Sender: FDA-Public Use
  Company Number: FR-BAXTER-2008BH010345

PATIENT
  Age: 60 Year
  Sex: Male

DRUGS (7)
  1. ENDOXAN BAXTER [Suspect]
     Indication: CENTRAL NERVOUS SYSTEM LYMPHOMA
     Route: 042
     Dates: start: 20080627, end: 20080627
  2. UROMITEXAN BAXTER [Suspect]
     Indication: CENTRAL NERVOUS SYSTEM LYMPHOMA
     Route: 042
     Dates: start: 20080627, end: 20080627
  3. UROMITEXAN BAXTER [Suspect]
     Route: 048
     Dates: start: 20080627, end: 20080627
  4. DOXORUBICIN HCL [Suspect]
     Indication: CENTRAL NERVOUS SYSTEM LYMPHOMA
     Route: 042
     Dates: start: 20080627, end: 20080627
  5. VINCRISTINE SULFATE [Suspect]
     Indication: CENTRAL NERVOUS SYSTEM LYMPHOMA
     Route: 042
     Dates: start: 20080627, end: 20080627
  6. CORTANCYL [Suspect]
     Indication: CENTRAL NERVOUS SYSTEM LYMPHOMA
     Route: 048
     Dates: start: 20080627, end: 20080701
  7. ONDANSETRON HCL [Suspect]
     Indication: CENTRAL NERVOUS SYSTEM LYMPHOMA
     Route: 042
     Dates: start: 20080627, end: 20080627

REACTIONS (2)
  - CARDIAC TAMPONADE [None]
  - PERICARDIAL EFFUSION [None]
